FAERS Safety Report 16414274 (Version 3)
Quarter: 2021Q1

REPORT INFORMATION
  Report Type: Spontaneous
  Country: BE (occurrence: BE)
  Receive Date: 20190611
  Receipt Date: 20210310
  Transmission Date: 20210419
  Serious: Yes (Hospitalization, Other)
  Sender: FDA-Public Use
  Company Number: BE-AUROBINDO-AUR-APL-2019-033210

PATIENT
  Age: 56 Year
  Sex: Male

DRUGS (2)
  1. SILDENAFIL FILM COATED TABLETS [Suspect]
     Active Substance: SILDENAFIL
     Indication: PRODUCT USED FOR UNKNOWN INDICATION
     Dosage: 6500 MILLIGRAM, TOTAL, 65 TABLETS OF 100MG
     Route: 048
  2. SILDENAFIL FILM COATED TABLETS [Suspect]
     Active Substance: SILDENAFIL
     Dosage: 100 MILLIGRAM,1 TOTAL
     Route: 048

REACTIONS (3)
  - Vomiting [Recovered/Resolved]
  - Vision blurred [Recovered/Resolved]
  - Toxicity to various agents [Recovered/Resolved]
